FAERS Safety Report 8258949-8 (Version None)
Quarter: 2012Q2

REPORT INFORMATION
  Report Type: 
  Country: None (occurrence: None)
  Receive Date: 20120404
  Receipt Date: 20120320
  Transmission Date: 20120825
  Serious: Yes (Hospitalization)
  Sender: FDA-Public Use
  Company Number: FR-ROCHE-1050806

PATIENT
  Sex: Female
  Weight: 52 kg

DRUGS (2)
  1. DOCETAXEL [Suspect]
     Indication: BREAST CANCER
     Dosage: LAST DOSE ON 07/MAR/2012
     Route: 042
     Dates: start: 20111123
  2. HERCEPTIN [Suspect]
     Indication: BREAST CANCER
     Dosage: LAST DOSE ON 07/MAR/2012
     Route: 042
     Dates: start: 20111123

REACTIONS (2)
  - GENERAL PHYSICAL HEALTH DETERIORATION [None]
  - OEDEMA [None]
